FAERS Safety Report 17027819 (Version 2)
Quarter: 2019Q4

REPORT INFORMATION
  Report Type: Spontaneous
  Country: US (occurrence: US)
  Receive Date: 20191113
  Receipt Date: 20191115
  Transmission Date: 20200122
  Serious: No
  Sender: FDA-Public Use
  Company Number: US-BAYER-2019-204664

PATIENT
  Sex: Female

DRUGS (1)
  1. MIRALAX [Suspect]
     Active Substance: POLYETHYLENE GLYCOL 3350
     Indication: CONSTIPATION
     Dosage: 17 G, QD
     Route: 048
     Dates: start: 201911

REACTIONS (4)
  - Drug ineffective for unapproved indication [Unknown]
  - Infrequent bowel movements [None]
  - Off label use [Unknown]
  - Therapeutic product effect incomplete [None]

NARRATIVE: CASE EVENT DATE: 201911
